FAERS Safety Report 7683304-9 (Version None)
Quarter: 2011Q3

REPORT INFORMATION
  Report Type: 
  Country: None (occurrence: None)
  Receive Date: 20110815
  Receipt Date: 20110805
  Transmission Date: 20111222
  Serious: Yes (Other)
  Sender: FDA-Public Use
  Company Number: JP-GLAXOSMITHKLINE-B0729372A

PATIENT
  Sex: Male

DRUGS (4)
  1. PHENOBARBITAL TAB [Concomitant]
     Indication: EPILEPSY
     Dosage: 360MG PER DAY
     Route: 048
  2. LAMICTAL [Suspect]
     Indication: EPILEPSY
     Dosage: 600MG PER DAY
     Route: 048
     Dates: start: 20100824, end: 20110622
  3. ZONISAMIDE [Concomitant]
     Route: 048
  4. TEGRETOL [Concomitant]
     Indication: EPILEPSY
     Dosage: 1200MG PER DAY
     Route: 048

REACTIONS (4)
  - THYROXINE FREE DECREASED [None]
  - BLOOD THYROID STIMULATING HORMONE INCREASED [None]
  - HYPOTHYROIDISM [None]
  - ALOPECIA [None]
